FAERS Safety Report 12038890 (Version 2)
Quarter: 2017Q1

REPORT INFORMATION
  Report Type: Spontaneous
  Country: LK (occurrence: LK)
  Receive Date: 20160208
  Receipt Date: 20170331
  Transmission Date: 20170428
  Serious: Yes (Life-Threatening, Other)
  Sender: FDA-Public Use
  Company Number: LK-SUN PHARMACEUTICAL INDUSTRIES LTD-2016R1-111177

PATIENT
  Age: 74 Year
  Sex: Male

DRUGS (1)
  1. AMOXICILLIN CLAVULANATE [Suspect]
     Active Substance: AMOXICILLIN\CLAVULANIC ACID
     Indication: URINARY TRACT INFECTION
     Dosage: 1.2 G, SINGLE
     Route: 042

REACTIONS (3)
  - Hypersensitivity [Recovering/Resolving]
  - Anaphylactic shock [Recovering/Resolving]
  - Kounis syndrome [Recovering/Resolving]
